FAERS Safety Report 17551778 (Version 2)
Quarter: 2021Q4

REPORT INFORMATION
  Report Type: Spontaneous
  Country: FR (occurrence: FR)
  Receive Date: 20200317
  Receipt Date: 20211102
  Transmission Date: 20220303
  Serious: No
  Sender: FDA-Public Use
  Company Number: FR-JAZZ-2020-FR-000183

PATIENT

DRUGS (2)
  1. XYREM [Suspect]
     Active Substance: SODIUM OXYBATE
     Indication: Narcolepsy
     Dosage: 4.5 G, QD
     Route: 048
     Dates: start: 20190408, end: 20190420
  2. XYREM [Suspect]
     Active Substance: SODIUM OXYBATE
     Dosage: 1 GRAM, BID
     Route: 048
     Dates: start: 20190429

REACTIONS (1)
  - Affective disorder [Recovered/Resolved]

NARRATIVE: CASE EVENT DATE: 20190401
